FAERS Safety Report 8490201-8 (Version None)
Quarter: 2012Q3

REPORT INFORMATION
  Report Type: 
  Country: None (occurrence: None)
  Receive Date: 20120705
  Receipt Date: 20110811
  Transmission Date: 20120928
  Serious: No
  Sender: FDA-Public Use
  Company Number: CA-BAUSCH-2011BL005386

PATIENT
  Age: 67 Year
  Sex: Male

DRUGS (2)
  1. OPCON-A [Suspect]
     Indication: EYE PRURITUS
     Route: 047
     Dates: start: 20110810, end: 20110810
  2. MULTI-VITAMINS [Concomitant]

REACTIONS (3)
  - NAUSEA [None]
  - HYPERHIDROSIS [None]
  - DIZZINESS [None]
